FAERS Safety Report 13554673 (Version 1)
Quarter: 2017Q2

REPORT INFORMATION
  Report Type: Spontaneous
  Country: TR (occurrence: TR)
  Receive Date: 20170517
  Receipt Date: 20170517
  Transmission Date: 20170830
  Serious: Yes (Death)
  Sender: FDA-Public Use
  Company Number: TR-JNJFOC-20170512414

PATIENT
  Age: 79 Year
  Sex: Female

DRUGS (4)
  1. DUROGESIC [Suspect]
     Active Substance: FENTANYL
     Indication: PAIN
     Route: 065
     Dates: start: 20170422, end: 20170423
  2. TRAMADOL. [Concomitant]
     Active Substance: TRAMADOL
     Indication: PAIN
     Route: 065
  3. PANTOPRAZOLE [Concomitant]
     Active Substance: PANTOPRAZOLE
     Indication: GASTROINTESTINAL DISORDER THERAPY
     Route: 065
  4. METPAMID [Concomitant]
     Active Substance: METOCLOPRAMIDE
     Indication: NAUSEA
     Route: 065

REACTIONS (4)
  - Atrial fibrillation [Fatal]
  - Arrhythmia [Fatal]
  - Malignant mesenchymoma [Fatal]
  - Respiratory depression [Fatal]

NARRATIVE: CASE EVENT DATE: 20170422
